FAERS Safety Report 5518996-3 (Version None)
Quarter: 2007Q4

REPORT INFORMATION
  Report Type: 
  Country: None (occurrence: None)
  Receive Date: 20071116
  Receipt Date: 20071107
  Transmission Date: 20080405
  Serious: Yes (Hospitalization)
  Sender: FDA-Public Use
  Company Number: PHBS2007AT18688

PATIENT
  Age: 63 Year
  Sex: Female

DRUGS (3)
  1. AREDIA [Suspect]
     Dosage: 60 MG, UNK
     Dates: start: 20071002
  2. DUOKLIMAN [Concomitant]
  3. EUTHYROX [Concomitant]
     Dosage: 75 UG, UNK

REACTIONS (10)
  - ANXIETY [None]
  - ATELECTASIS [None]
  - BACK PAIN [None]
  - BLOOD CALCIUM DECREASED [None]
  - C-REACTIVE PROTEIN INCREASED [None]
  - CHEST PAIN [None]
  - DYSPNOEA [None]
  - FIBRIN D DIMER INCREASED [None]
  - PLEURAL EFFUSION [None]
  - WHITE BLOOD CELL COUNT DECREASED [None]
